FAERS Safety Report 9462042 (Version 1)
Quarter: 2013Q3

REPORT INFORMATION
  Report Type: Spontaneous
  Country: US (occurrence: None)
  Receive Date: 20130815
  Receipt Date: 20130815
  Transmission Date: 20140515
  Serious: Yes (Hospitalization)
  Sender: FDA-Public Use
  Company Number: None

PATIENT
  Age: 73 Year
  Sex: Male
  Weight: 90.6 kg

DRUGS (9)
  1. LYRICA [Suspect]
     Indication: PAIN
     Dosage: ???
  2. AMBIEN [Concomitant]
  3. BENADRYL [Concomitant]
  4. NORVASC [Concomitant]
  5. METFORMIN/GLYBURIDE [Concomitant]
  6. SENNA [Concomitant]
  7. LOVASTATIN [Concomitant]
  8. ASPIRIN [Concomitant]
  9. MVI [Concomitant]

REACTIONS (1)
  - Presyncope [None]
